FAERS Safety Report 6112457-9 (Version None)
Quarter: 2009Q1

REPORT INFORMATION
  Report Type: 
  Country: None (occurrence: None)
  Receive Date: 20090311
  Receipt Date: 20090311
  Transmission Date: 20090719
  Serious: Yes (Other)
  Sender: FDA-Public Use
  Company Number: None

PATIENT
  Sex: Female

DRUGS (1)
  1. LEVSIN PB [Suspect]
     Indication: HYPERCHLORHYDRIA
     Dosage: PLACE ONE TABLET UNDER THE TONGUE THREE TIMES A DAY AS NEEDED
     Dates: start: 20090203

REACTIONS (2)
  - DRUG INEFFECTIVE [None]
  - PRODUCT QUALITY ISSUE [None]
